FAERS Safety Report 6682571-8 (Version None)
Quarter: 2010Q2

REPORT INFORMATION
  Report Type: 
  Country: None (occurrence: None)
  Receive Date: 20100414
  Receipt Date: 20100414
  Transmission Date: 20101027
  Serious: Yes (Other)
  Sender: FDA-Public Use
  Company Number: None

PATIENT
  Age: 57 Year
  Sex: Female
  Weight: 72.7 kg

DRUGS (1)
  1. LIOTHYRONINE SODIUM [Suspect]
     Indication: HYPOTHYROIDISM
     Dosage: 1/2 TABLET 3 TIMES DAILEY
     Dates: start: 20090724, end: 20090731

REACTIONS (8)
  - CONSTIPATION [None]
  - DRUG DISPENSING ERROR [None]
  - DYSGRAPHIA [None]
  - FATIGUE [None]
  - FEELING COLD [None]
  - MENTAL DISORDER [None]
  - PRODUCT SUBSTITUTION ISSUE [None]
  - TREMOR [None]
